FAERS Safety Report 6661996-0 (Version None)
Quarter: 2010Q1

REPORT INFORMATION
  Report Type: 
  Country: None (occurrence: None)
  Receive Date: 20100331
  Receipt Date: 20091231
  Transmission Date: 20100710
  Serious: Yes (Hospitalization)
  Sender: FDA-Public Use
  Company Number: US-BRISTOL-MYERS SQUIBB COMPANY-14871347

PATIENT
  Age: 62 Year
  Sex: Female
  Weight: 62 kg

DRUGS (11)
  1. ERBITUX [Suspect]
     Indication: TONGUE NEOPLASM MALIGNANT STAGE UNSPECIFIED
     Dosage: 4TH TREATMENT ON 23NOV09
     Dates: start: 20091102
  2. ALBUTEROL [Concomitant]
     Dosage: 1 DF = 1 PUFF, PRN
  3. ASPIRIN [Concomitant]
  4. TUMS [Concomitant]
  5. VITAMIN D [Concomitant]
  6. DOCUSATE [Concomitant]
  7. REGLAN [Concomitant]
     Dosage: PRN
  8. OXYCODONE [Concomitant]
     Dosage: 1 DF = 5-10MG, PRN
  9. PROTONIX [Concomitant]
  10. PREDNISONE [Concomitant]
     Dates: start: 20091121
  11. SENNA [Concomitant]
     Dosage: 1 DF =1 TAB

REACTIONS (6)
  - CHILLS [None]
  - HYPOTENSION [None]
  - PAIN [None]
  - SINUS TACHYCARDIA [None]
  - TACHYPNOEA [None]
  - WHEEZING [None]
